FAERS Safety Report 21004816 (Version 3)
Quarter: 2022Q4

REPORT INFORMATION
  Report Type: Report from Study
  Country: US (occurrence: US)
  Receive Date: 20220624
  Receipt Date: 20221114
  Transmission Date: 20230113
  Serious: Yes (Other)
  Sender: FDA-Public Use
  Company Number: US-NOVARTISPH-NVSC2022US139705

PATIENT
  Age: 62 Year
  Sex: Male

DRUGS (1)
  1. ENTRESTO [Suspect]
     Active Substance: SACUBITRIL\VALSARTAN
     Indication: Product used for unknown indication
     Dosage: 1 DOSAGE FORM, BID (24 MG), (24/26 MG)
     Route: 048
     Dates: start: 202106

REACTIONS (6)
  - Loss of consciousness [Recovering/Resolving]
  - Diabetes mellitus [Recovering/Resolving]
  - Vocal cord disorder [Unknown]
  - Pain in jaw [Unknown]
  - Visual impairment [Unknown]
  - Ophthalmic migraine [Recovering/Resolving]

NARRATIVE: CASE EVENT DATE: 20210701
